FAERS Safety Report 8234959-1 (Version None)
Quarter: 2012Q1

REPORT INFORMATION
  Report Type: 
  Country: None (occurrence: None)
  Receive Date: 20120326
  Receipt Date: 20120323
  Transmission Date: 20120608
  Serious: Yes (Hospitalization)
  Sender: FDA-Public Use
  Company Number: JP-PFIZER INC-2012071203

PATIENT
  Age: 79 Year
  Sex: Female

DRUGS (3)
  1. AMIODARONE HYDROCHLORIDE [Suspect]
     Dosage: 200 MG, DAILY
     Route: 048
  2. PLAVIX [Suspect]
     Indication: CEREBRAL INFARCTION
     Dosage: 50 MG, DAILY
     Route: 048
     Dates: start: 20120201
  3. DABIGATRAN ETEXILATE [Concomitant]
     Indication: ATRIAL FIBRILLATION

REACTIONS (1)
  - LEUKOPENIA [None]
